FAERS Safety Report 19684302 (Version 4)
Quarter: 2025Q4

REPORT INFORMATION
  Report Type: Spontaneous
  Country: EU (occurrence: EU)
  Receive Date: 20210811
  Receipt Date: 20251107
  Transmission Date: 20260117
  Serious: Yes (Other)
  Sender: CELLTRION
  Company Number: EU-CELLTRION INC.-2021CZ010492

PATIENT

DRUGS (12)
  1. TRASTUZUMAB [Suspect]
     Active Substance: TRASTUZUMAB
     Indication: Breast cancer metastatic
     Dosage: 6 MG/KG, EVERY 21 DAYS
     Route: 042
     Dates: end: 202105
  2. TRASTUZUMAB [Suspect]
     Active Substance: TRASTUZUMAB
     Dosage: 8 MG/KG, EVERY 21 DAYS
     Route: 042
  3. TRASTUZUMAB [Suspect]
     Active Substance: TRASTUZUMAB
     Dosage: 6 MG/KG, EVERY 21 DAYS
     Route: 042
  4. DOCETAXEL [Suspect]
     Active Substance: DOCETAXEL
     Indication: Breast cancer metastatic
     Dosage: 75 MG/M2, 6 CYCLICAL (OVER A PERIOD OF 21 DAYS)
     Route: 042
     Dates: end: 201507
  5. DOCETAXEL [Suspect]
     Active Substance: DOCETAXEL
     Dosage: 90 MG/M2, EVERY 21 DAYS
     Route: 042
     Dates: end: 201105
  6. DOCETAXEL [Suspect]
     Active Substance: DOCETAXEL
     Dosage: 75 MG/M2, EVERY 21 DAYS
     Route: 042
     Dates: end: 201507
  7. PERTUZUMAB [Suspect]
     Active Substance: PERTUZUMAB
     Indication: Breast cancer metastatic
     Dosage: 420 MG, EVERY 21 DAYS
     Route: 042
  8. LETROZOLE [Suspect]
     Active Substance: LETROZOLE
     Indication: Breast cancer metastatic
     Dosage: 2.5 MG, EVERY 1 DAY
     Dates: start: 201507, end: 201507
  9. PACLITAXEL [Concomitant]
     Active Substance: PACLITAXEL
     Dosage: 90 MG/M2, 1/WEEK
  10. FULVESTRANT [Concomitant]
     Active Substance: FULVESTRANT
     Dosage: UNK
  11. TAMOXIFEN [Concomitant]
     Active Substance: TAMOXIFEN
     Dosage: UNK
  12. GOSERELIN [Concomitant]
     Active Substance: GOSERELIN
     Dosage: UNK

REACTIONS (10)
  - Neuropathy peripheral [Unknown]
  - Joint stiffness [Unknown]
  - Haematotoxicity [Unknown]
  - Alopecia [Unknown]
  - Myalgia [Unknown]
  - Nail disorder [Unknown]
  - Asthenia [Unknown]
  - Fatigue [Unknown]
  - Arthralgia [Unknown]
  - Diarrhoea [Unknown]

NARRATIVE: CASE EVENT DATE: 20150101
